FAERS Safety Report 13168150 (Version 5)
Quarter: 2021Q3

REPORT INFORMATION
  Report Type: Spontaneous
  Country: US (occurrence: US)
  Receive Date: 20170131
  Receipt Date: 20210831
  Transmission Date: 20211014
  Serious: Yes (Hospitalization)
  Sender: FDA-Public Use
  Company Number: US-009507513-1701USA013605

PATIENT
  Age: 71 Year
  Sex: Female

DRUGS (13)
  1. IPRATROPIUM BROMIDE. [Concomitant]
     Active Substance: IPRATROPIUM BROMIDE
     Dosage: UNK
  2. PROVENTIL [Suspect]
     Active Substance: ALBUTEROL
     Dosage: 2 PUFFS EVERY 4 HOURS AS NEEDED
  3. PROVENTIL [Suspect]
     Active Substance: ALBUTEROL
     Dosage: 2 PUFFS 4 TIMES A DAY (QID)
     Route: 055
     Dates: start: 201901
  4. PREDNISONE. [Concomitant]
     Active Substance: PREDNISONE
     Dosage: UNK
  5. SYMBICORT [Concomitant]
     Active Substance: BUDESONIDE\FORMOTEROL FUMARATE DIHYDRATE
     Dosage: UNK
  6. PROVENTIL [Suspect]
     Active Substance: ALBUTEROL
     Indication: ASTHMA
     Dosage: 90 MICROGRAM ^2 PUFFS EVERY FOUR HOURS^
     Route: 055
     Dates: start: 201511
  7. PROVENTIL [Suspect]
     Active Substance: ALBUTEROL
     Dosage: 2 PUFFS 4 TIMES A DAY (QID)
     Route: 055
     Dates: start: 201901
  8. PROVENTIL [Suspect]
     Active Substance: ALBUTEROL
     Dosage: 2 PUFFS EVERY 4?6 HOURS
  9. PROVENTIL [Concomitant]
     Active Substance: ALBUTEROL
     Dosage: UNK
  10. PROVENTIL [Suspect]
     Active Substance: ALBUTEROL
     Dosage: UNK
  11. PROVENTIL [Suspect]
     Active Substance: ALBUTEROL
     Dosage: 2 PUFFS EVERY 4 HOURS AS NEEDED
  12. PROVENTIL [Suspect]
     Active Substance: ALBUTEROL
     Dosage: UNK
  13. PROVENTIL [Suspect]
     Active Substance: ALBUTEROL
     Dosage: UNK

REACTIONS (18)
  - Poor quality device used [Unknown]
  - Poor quality device used [Unknown]
  - Poor quality device used [Unknown]
  - Product dose omission issue [Unknown]
  - Product delivery mechanism issue [Unknown]
  - Ill-defined disorder [Not Recovered/Not Resolved]
  - Product delivery mechanism issue [Unknown]
  - Product supply issue [Unknown]
  - Dyspnoea [Recovered/Resolved]
  - Asthma [Unknown]
  - Product delivery mechanism issue [Unknown]
  - Influenza [Not Recovered/Not Resolved]
  - Product dose omission issue [Unknown]
  - Product dose omission issue [Unknown]
  - Adverse event [Unknown]
  - Poor quality device used [Unknown]
  - Product delivery mechanism issue [Unknown]
  - Product delivery mechanism issue [Unknown]

NARRATIVE: CASE EVENT DATE: 201809
